FAERS Safety Report 9802398 (Version 2)
Quarter: 2014Q1

REPORT INFORMATION
  Report Type: Report from Study
  Country: US (occurrence: US)
  Receive Date: 20140107
  Receipt Date: 20140107
  Transmission Date: 20141002
  Serious: Yes (Hospitalization, Disabling, Other)
  Sender: FDA-Public Use
  Company Number: US-BRISTOL-MYERS SQUIBB COMPANY-15423833

PATIENT
  Age: 57 Year
  Sex: Male

DRUGS (37)
  1. IPILIMUMAB [Suspect]
     Indication: MALIGNANT MELANOMA
     Dosage: NO OF COURSES=2,ALSO TAKEN 909 MG
     Route: 042
     Dates: start: 20101011, end: 20101102
  2. SENNA [Concomitant]
     Indication: PROPHYLAXIS
     Dosage: 1DEC10-3-DEC10?10JAN11-ONG
     Dates: start: 20101201
  3. SENNA [Concomitant]
     Indication: CONSTIPATION
     Dosage: 1DEC10-3-DEC10?10JAN11-ONG
     Dates: start: 20101201
  4. ROSUVASTATIN [Concomitant]
     Indication: PROPHYLAXIS
     Dates: start: 20101201, end: 20101230
  5. ACETAMINOPHEN [Concomitant]
     Indication: PYREXIA
     Dosage: 17DEC10-17DEC10,10JAN11-11JAN11?28JAN11-ONG
     Dates: start: 20101217
  6. AMITRIPTYLINE HCL [Concomitant]
     Indication: ANXIETY
     Dates: end: 20101201
  7. ACYCLOVIR [Concomitant]
     Indication: RASH
     Dates: start: 20101201
  8. PANTOPRAZOLE [Concomitant]
     Indication: GASTROOESOPHAGEAL REFLUX DISEASE
     Dates: start: 20101201
  9. INSULIN ASPART [Concomitant]
     Indication: HYPERGLYCAEMIA
     Dosage: 1DEC10-3DEC10?21JAN11-ONG
     Dates: start: 20101201
  10. ENOXAPARIN SODIUM [Concomitant]
     Indication: DEEP VEIN THROMBOSIS
     Dosage: 1DEC10-5DEC10?18JAN11-ONG
     Dates: start: 20101201
  11. HYDROCODONE + ACETAMINOPHEN [Concomitant]
     Indication: PAIN
     Dates: start: 20101201
  12. HYDROMORPHONE HCL [Concomitant]
     Indication: PAIN
     Dates: start: 20101130, end: 20101201
  13. DOCUSATE [Concomitant]
     Indication: CONSTIPATION
     Dosage: 1DEC10-3DEC10?10JAN11-ONG
     Dates: start: 20101201
  14. ELOCON [Concomitant]
     Dates: start: 20101102, end: 20101220
  15. LYRICA [Concomitant]
     Dates: start: 20101122
  16. ACTONEL [Concomitant]
     Indication: PROPHYLAXIS
     Dates: start: 201011
  17. PREDNISONE [Concomitant]
     Indication: DIARRHOEA
     Dosage: 21NOV10-29DEC10?18JAN11-ONG
     Dates: start: 20101121
  18. PERCOCET [Concomitant]
     Indication: PAIN
     Dates: start: 20101201
  19. BACTRIM [Concomitant]
     Indication: INFECTION
     Dates: start: 20101225
  20. INSULIN GLARGINE [Concomitant]
     Indication: HYPERGLYCAEMIA
     Dates: start: 20110126
  21. INSULIN NPH [Concomitant]
     Indication: HYPERGLYCAEMIA
     Dates: start: 20110118, end: 20110125
  22. FLUCONAZOLE [Concomitant]
     Indication: PYREXIA
     Dates: start: 20110111, end: 20110124
  23. DIPHENHYDRAMINE [Concomitant]
     Indication: INSOMNIA
     Dates: start: 20110127, end: 20110127
  24. POTASSIUM CHLORIDE [Concomitant]
     Indication: PROPHYLAXIS
     Dates: start: 20110111, end: 20110126
  25. CALCIUM GLUCONATE [Concomitant]
     Indication: PROPHYLAXIS
     Dates: start: 20110113, end: 20110113
  26. MORPHINE SULFATE [Concomitant]
     Indication: PAIN
     Dates: start: 201101, end: 201101
  27. NEOMYCIN [Concomitant]
     Indication: PYREXIA
     Dates: start: 201101, end: 201101
  28. ONDANSETRON [Concomitant]
     Indication: PROPHYLAXIS
     Dates: start: 20110112, end: 20110112
  29. LORAZEPAM [Concomitant]
     Indication: ANXIETY
     Dates: start: 20110122, end: 20110126
  30. GABAPENTINE [Concomitant]
     Indication: NEUROPATHY PERIPHERAL
     Dates: start: 20110110, end: 20110110
  31. FLUOCINONIDE [Concomitant]
     Indication: RASH
     Dates: start: 20110111
  32. OXYCODONE [Concomitant]
     Indication: PAIN
     Dates: start: 20110110, end: 20110116
  33. SODIUM PHOSPHATE [Concomitant]
     Indication: PROPHYLAXIS
     Dates: start: 20110124, end: 20110126
  34. TRAZODONE HCL [Concomitant]
     Indication: DEPRESSION
     Dates: start: 20110111, end: 20110112
  35. ZOLPIDEM [Concomitant]
     Indication: INSOMNIA
     Dates: start: 20110120
  36. BISACODYL [Concomitant]
     Indication: CONSTIPATION
     Dates: start: 20110128
  37. CEFAPIRIN [Concomitant]
     Indication: PYREXIA
     Dates: start: 2011, end: 2011

REACTIONS (6)
  - Polyneuropathy [Not Recovered/Not Resolved]
  - Pyrexia [Recovered/Resolved]
  - Fatigue [Recovered/Resolved]
  - Rash [Recovered/Resolved]
  - Deep vein thrombosis [Not Recovered/Not Resolved]
  - Haematoma [Recovered/Resolved]
